FAERS Safety Report 9277786 (Version 2)
Quarter: 2013Q3

REPORT INFORMATION
  Report Type: Report from Study
  Country: US (occurrence: US)
  Receive Date: 20130508
  Receipt Date: 20130821
  Transmission Date: 20140515
  Serious: Yes (Hospitalization, Other)
  Sender: FDA-Public Use
  Company Number: US-NAPPMUNDI-USA-2013-0101791

PATIENT
  Age: 64 Year
  Sex: Male
  Weight: 88.44 kg

DRUGS (1)
  1. OXYCONTIN (NDA 22-272) [Suspect]
     Indication: CANCER PAIN
     Dosage: 40 MG, Q12H
     Route: 048
     Dates: start: 20121130, end: 20130509

REACTIONS (2)
  - Pneumothorax [Not Recovered/Not Resolved]
  - Pneumonia [Unknown]
